FAERS Safety Report 21083274 (Version 2)
Quarter: 2022Q3

REPORT INFORMATION
  Report Type: Spontaneous
  Country: US (occurrence: US)
  Receive Date: 20220714
  Receipt Date: 20220909
  Transmission Date: 20221027
  Serious: No
  Sender: FDA-Public Use
  Company Number: US-BRISTOL-MYERS SQUIBB COMPANY-2022-073922

PATIENT
  Age: 73 Year
  Sex: Female
  Weight: 44.452 kg

DRUGS (1)
  1. REVLIMID [Suspect]
     Active Substance: LENALIDOMIDE
     Indication: Plasma cell myeloma
     Dosage: FREQUENCY:3W, 1W OFF?EXPIRATION DATE-30-JUN-2024
     Route: 048
     Dates: start: 20220501

REACTIONS (2)
  - Urinary tract infection [Unknown]
  - Fatigue [Unknown]
